FAERS Safety Report 7457984-7 (Version None)
Quarter: 2011Q2

REPORT INFORMATION
  Report Type: 
  Country: None (occurrence: None)
  Receive Date: 20110504
  Receipt Date: 20110425
  Transmission Date: 20111010
  Serious: Yes (Hospitalization)
  Sender: FDA-Public Use
  Company Number: US-NAPPMUNDI-USA-2011-0066170

PATIENT
  Sex: Female

DRUGS (2)
  1. VICODIN [Concomitant]
     Indication: PRODUCT USED FOR UNKNOWN INDICATION
     Dosage: UNK, SEE TEXT
  2. BUTRANS [Suspect]
     Indication: PAIN
     Dosage: 5 MCG, Q1H
     Route: 062
     Dates: start: 20110317, end: 20110322

REACTIONS (6)
  - DRUG WITHDRAWAL SYNDROME [None]
  - FATIGUE [None]
  - HOSPITALISATION [None]
  - DRUG LEVEL INCREASED [None]
  - PHOTOPHOBIA [None]
  - HEADACHE [None]
